FAERS Safety Report 24268570 (Version 1)
Quarter: 2024Q3

REPORT INFORMATION
  Report Type: Spontaneous
  Country: US (occurrence: None)
  Receive Date: 20240829
  Receipt Date: 20240829
  Transmission Date: 20241017
  Serious: Yes (Congenital Anomaly)
  Sender: Public
  Company Number: None

PATIENT
  Age: 31 Year
  Sex: Female
  Weight: 60.75 kg

DRUGS (3)
  1. ENBREL [Suspect]
     Active Substance: ETANERCEPT
     Indication: Ankylosing spondylitis
     Dosage: OTHER QUANTITY : 30 INJECTION(S);?OTHER FREQUENCY : WEEKLY;?OTHER ROUTE : INJECTED INTO FAT ON ABDOM
     Route: 050
     Dates: start: 20140331, end: 20240622
  2. ZOFRAN [Suspect]
     Active Substance: ONDANSETRON HYDROCHLORIDE
  3. VALTREX [Suspect]
     Active Substance: VALACYCLOVIR HYDROCHLORIDE

REACTIONS (4)
  - Exposure during pregnancy [None]
  - Maternal drugs affecting foetus [None]
  - Lipoma [None]
  - Neoplasm progression [None]

NARRATIVE: CASE EVENT DATE: 20240524
